FAERS Safety Report 12934037 (Version 1)
Quarter: 2016Q4

REPORT INFORMATION
  Report Type: Spontaneous
  Country: FI (occurrence: FI)
  Receive Date: 20161111
  Receipt Date: 20161111
  Transmission Date: 20170207
  Serious: Yes (Hospitalization)
  Sender: FDA-Public Use
  Company Number: PHHY2016FI152034

PATIENT
  Age: 25 Year
  Sex: Male

DRUGS (1)
  1. MEROPENEM. [Suspect]
     Active Substance: MEROPENEM
     Indication: SEPSIS
     Dosage: 1 G, TID
     Route: 042
     Dates: start: 201509

REACTIONS (4)
  - Jarisch-Herxheimer reaction [Recovered/Resolved]
  - Blood pressure decreased [Recovered/Resolved]
  - Condition aggravated [Recovered/Resolved]
  - Pyrexia [Recovered/Resolved]

NARRATIVE: CASE EVENT DATE: 201509
